FAERS Safety Report 10038941 (Version 1)
Quarter: 2014Q1

REPORT INFORMATION
  Report Type: Spontaneous
  Country: US (occurrence: None)
  Receive Date: 20140306
  Receipt Date: 20140306
  Transmission Date: 20141002
  Serious: Yes (Other)
  Sender: FDA-Public Use
  Company Number: 163-21880-13063970

PATIENT
  Age: 83 Year
  Sex: Female
  Weight: 56.25 kg

DRUGS (4)
  1. REVLIMID [Suspect]
     Indication: PLASMA CELL MYELOMA
     Dosage: 5 MG, 21 IN 28 D, PO
     Route: 048
     Dates: start: 20120416
  2. CALCIUM + VITAMIN D (LEKOVIT CA) (UNKNOWN) [Concomitant]
  3. SYNTHROID (LEVOTHYROXINE SODIUM) (UNKNOWN) [Concomitant]
  4. SIMVASTATIN (SIMVASTATIN) (UNKNOWN) [Concomitant]

REACTIONS (1)
  - Memory impairment [None]
